FAERS Safety Report 7715673-5 (Version None)
Quarter: 2011Q3

REPORT INFORMATION
  Report Type: 
  Country: None (occurrence: None)
  Receive Date: 20110823
  Receipt Date: 20110809
  Transmission Date: 20111222
  Serious: Yes (Death, Other)
  Sender: FDA-Public Use
  Company Number: 1000023017

PATIENT
  Age: 58 Year

DRUGS (7)
  1. FLUNITRAZEPAM (FLUNITRAZEPAM) [Suspect]
  2. CITALOPRAM HYDROBROMIDE [Suspect]
  3. DIAZEPAM [Suspect]
  4. KETOBEMIDONE (KETOBEMIDONE) [Suspect]
  5. AMLODIPINE [Suspect]
  6. ALPRAZOLAM [Suspect]
  7. MIANSERINE (MIANSERIN HYDROCHLORIDE) [Suspect]

REACTIONS (1)
  - DRUG LEVEL ABOVE THERAPEUTIC [None]
